FAERS Safety Report 25057301 (Version 2)
Quarter: 2025Q2

REPORT INFORMATION
  Report Type: Report from Study
  Country: US (occurrence: US)
  Receive Date: 20250310
  Receipt Date: 20250409
  Transmission Date: 20250716
  Serious: Yes (Other)
  Sender: TAKEDA
  Company Number: US-TAKEDA-2025TUS010352

PATIENT
  Sex: Female
  Weight: 58 kg

DRUGS (16)
  1. HUMAN IMMUNOGLOBULIN G [Suspect]
     Active Substance: HUMAN IMMUNOGLOBULIN G
     Indication: Congenital hypogammaglobulinaemia
     Dosage: 23 GRAM, Q2WEEKS
     Dates: start: 20241115
  2. CELLCEPT [Suspect]
     Active Substance: MYCOPHENOLATE MOFETIL
     Indication: Product used for unknown indication
     Dosage: 500 MILLIGRAM, BID
  3. ACETAMINOPHEN [Concomitant]
     Active Substance: ACETAMINOPHEN
  4. EPINEPHRINE [Concomitant]
     Active Substance: EPINEPHRINE
  5. VITAMIN C [Concomitant]
     Active Substance: ASCORBIC ACID
  6. EZETIMIBE [Concomitant]
     Active Substance: EZETIMIBE
  7. RITUXAN [Concomitant]
     Active Substance: RITUXIMAB
  8. MAGNESIUM [Concomitant]
     Active Substance: MAGNESIUM
  9. VITAMIN D3 [Concomitant]
     Active Substance: CHOLECALCIFEROL
  10. GABAPENTIN [Concomitant]
     Active Substance: GABAPENTIN
  11. LIDOCAINE [Concomitant]
     Active Substance: LIDOCAINE
  12. METOPROLOL SUCCINATE [Concomitant]
     Active Substance: METOPROLOL SUCCINATE
  13. CALCIUM [Concomitant]
     Active Substance: CALCIUM
  14. VITAMIN B [Concomitant]
     Active Substance: VITAMIN B
  15. DIPHENHYDRAMINE HYDROCHLORIDE [Concomitant]
     Active Substance: DIPHENHYDRAMINE HYDROCHLORIDE
  16. BACTRIM [Concomitant]
     Active Substance: SULFAMETHOXAZOLE\TRIMETHOPRIM

REACTIONS (3)
  - Nephrolithiasis [Unknown]
  - Infection [Unknown]
  - White blood cell count decreased [Unknown]
